FAERS Safety Report 14261644 (Version 2)
Quarter: 2018Q1

REPORT INFORMATION
  Report Type: Spontaneous
  Country: US (occurrence: US)
  Receive Date: 20171208
  Receipt Date: 20180110
  Transmission Date: 20180508
  Serious: No
  Sender: FDA-Public Use
  Company Number: US-PFIZER INC-2017526345

PATIENT
  Age: 68 Year
  Sex: Female
  Weight: 58.97 kg

DRUGS (2)
  1. MORPHINE SULFATE. [Suspect]
     Active Substance: MORPHINE SULFATE
     Indication: PAIN
     Dosage: 100 MG, UNK
  2. MORPHINE SULFATE. [Suspect]
     Active Substance: MORPHINE SULFATE
     Dosage: 300 MG, 1X/DAY

REACTIONS (2)
  - Drug effect incomplete [Unknown]
  - Overdose [Unknown]
